FAERS Safety Report 19177789 (Version 1)
Quarter: 2021Q2

REPORT INFORMATION
  Report Type: Spontaneous
  Country: US (occurrence: US)
  Receive Date: 20210426
  Receipt Date: 20210426
  Transmission Date: 20210717
  Serious: Yes (Hospitalization, Other)
  Sender: FDA-Public Use
  Company Number: US-AUROBINDO-AUR-APL-2021-015435

PATIENT
  Age: 24 Year
  Sex: Female
  Weight: 60 kg

DRUGS (13)
  1. SODIUM CHLORIDE. [Concomitant]
     Active Substance: SODIUM CHLORIDE
     Dosage: UNK (4 LITERS)
     Route: 042
  2. SODIUM BICARBONATE. [Concomitant]
     Active Substance: SODIUM BICARBONATE
     Dosage: 25 MILLIEQUIVALENT PER MILLILITRE
     Route: 042
  3. CHARCOAL ACTIVATED [Concomitant]
     Active Substance: ACTIVATED CHARCOAL
     Indication: GASTRIC LAVAGE
     Dosage: UNK
     Route: 065
  4. MAGNESIUM [Concomitant]
     Active Substance: MAGNESIUM
     Indication: ARRHYTHMIA
     Dosage: 2 GRAM (100 ML SUSPENSION OVER 8 HOURS )
     Route: 042
  5. SOYA OIL [Concomitant]
     Active Substance: SOYBEAN OIL
     Indication: ELECTROCARDIOGRAM QT INTERVAL
     Dosage: UNK (1.5 ML/KG FOLLOWED BY 20% SOYA OIL EMULSION 25 ML/HR INFUSION)
     Route: 042
  6. SOYA OIL [Concomitant]
     Active Substance: SOYBEAN OIL
     Dosage: UNK (25 ML/HR INFUSION AS PER ICU TEAM RECOMMENDATION)
     Route: 042
  7. NOREPINEPHRINE. [Concomitant]
     Active Substance: NOREPINEPHRINE
     Indication: HYPOTENSION
     Dosage: 0.1 MICROGRAM/KILOGRAM (PER MIN)
     Route: 065
  8. SODIUM BICARBONATE. [Concomitant]
     Active Substance: SODIUM BICARBONATE
     Dosage: 50 MILLIEQUIVALENT PER MILLILITRE (8.4%)
     Route: 042
  9. DIPHENHYDRAMINE. [Suspect]
     Active Substance: DIPHENHYDRAMINE
     Indication: PRODUCT USED FOR UNKNOWN INDICATION
     Dosage: 18 GRAM(360 PILLS OF 50MG)
     Route: 065
  10. SODIUM CHLORIDE. [Concomitant]
     Active Substance: SODIUM CHLORIDE
     Indication: ARRHYTHMIA
     Dosage: UNK (2 LITERS)
     Route: 042
  11. NOREPINEPHRINE. [Concomitant]
     Active Substance: NOREPINEPHRINE
     Dosage: 0.5 MICROGRAM/KILOGRAM (PER MIN OVER A PERIOD OF 120 MINUTES )
     Route: 065
  12. SODIUM BICARBONATE. [Concomitant]
     Active Substance: SODIUM BICARBONATE
     Indication: METABOLIC ACIDOSIS
     Dosage: 100  MILLIEQUIVALENT PER MILLILITRE (8.4%)
     Route: 042
  13. PROPOFOL. [Concomitant]
     Active Substance: PROPOFOL
     Indication: PRODUCT USED FOR UNKNOWN INDICATION
     Dosage: UNK (50 MCG/MIN)
     Route: 065

REACTIONS (17)
  - Generalised tonic-clonic seizure [Recovered/Resolved]
  - Hypotension [Recovered/Resolved]
  - Coma [Recovered/Resolved]
  - Confusional state [Recovered/Resolved]
  - Encephalopathy [Recovered/Resolved]
  - Delirium [Recovered/Resolved]
  - Mydriasis [Recovered/Resolved]
  - Tachycardia [Recovered/Resolved]
  - Atrioventricular block first degree [Unknown]
  - Psychotic disorder [Recovered/Resolved]
  - Electrocardiogram QRS complex prolonged [Recovered/Resolved]
  - Sedation [Recovered/Resolved]
  - Gastrointestinal sounds abnormal [Recovered/Resolved]
  - Metabolic acidosis [Recovered/Resolved]
  - Electrocardiogram QT prolonged [Recovered/Resolved]
  - Extensor plantar response [Recovered/Resolved]
  - Overdose [Unknown]
